FAERS Safety Report 19217326 (Version 2)
Quarter: 2021Q2

REPORT INFORMATION
  Report Type: Report from Study
  Country: CA (occurrence: CA)
  Receive Date: 20210505
  Receipt Date: 20210525
  Transmission Date: 20210717
  Serious: Yes (Other)
  Sender: FDA-Public Use
  Company Number: CA-JNJFOC-20210450686

PATIENT
  Age: 6 Decade
  Sex: Male
  Weight: 105 kg

DRUGS (1)
  1. REMICADE [Suspect]
     Active Substance: INFLIXIMAB
     Indication: CROHN^S DISEASE
     Dosage: ON 23?APR?2021, THE PATIENT RECEIVED 61ST INFLIXIMAB, RECOMBINANT FOR DOSE 500 MILLIGRAM
     Route: 042
     Dates: start: 20160520

REACTIONS (6)
  - Staphylococcal infection [Recovered/Resolved]
  - Eyelid pain [Not Recovered/Not Resolved]
  - Frequent bowel movements [Not Recovered/Not Resolved]
  - Hypertension [Unknown]
  - Anxiety [Unknown]
  - Diarrhoea [Not Recovered/Not Resolved]

NARRATIVE: CASE EVENT DATE: 2019
